FAERS Safety Report 4846598-0 (Version None)
Quarter: 2005Q4

REPORT INFORMATION
  Report Type: 
  Country: None (occurrence: None)
  Receive Date: 20051202
  Receipt Date: 20051123
  Transmission Date: 20060501
  Serious: Yes (Hospitalization)
  Sender: FDA-Public Use
  Company Number: CAP05000342

PATIENT
  Age: 44 Year
  Sex: Female

DRUGS (2)
  1. ACTONEL [Suspect]
     Dosage: 35 MG ONCE A WEEK, ORAL
     Route: 048
  2. IBUPROFEN [Concomitant]

REACTIONS (1)
  - PANCREATITIS [None]
